FAERS Safety Report 19228712 (Version 2)
Quarter: 2021Q3

REPORT INFORMATION
  Report Type: Spontaneous
  Country: US (occurrence: US)
  Receive Date: 20210506
  Receipt Date: 20210911
  Transmission Date: 20211014
  Serious: Yes (Death)
  Sender: FDA-Public Use
  Company Number: US-ROCHE-2753586

PATIENT
  Age: 79 Year
  Sex: Male

DRUGS (3)
  1. OFEV [Suspect]
     Active Substance: NINTEDANIB
     Indication: IDIOPATHIC PULMONARY FIBROSIS
     Route: 048
     Dates: start: 20201109
  2. ESBRIET [Suspect]
     Active Substance: PIRFENIDONE
     Indication: IDIOPATHIC PULMONARY FIBROSIS
     Route: 048
     Dates: start: 20190305, end: 202012
  3. OFEV [Suspect]
     Active Substance: NINTEDANIB
     Dosage: 300 MG (100 MG), 1 IN 0.5 DAY, 300/0 MG(150 MG), 1 IN 12 HR.
     Route: 048
     Dates: start: 20210219, end: 20210619

REACTIONS (9)
  - Anosmia [Recovering/Resolving]
  - Decreased appetite [Unknown]
  - Headache [Unknown]
  - Idiopathic pulmonary fibrosis [Fatal]
  - Ageusia [Recovering/Resolving]
  - Somnolence [Unknown]
  - Diarrhoea [Not Recovered/Not Resolved]
  - Abdominal discomfort [Recovering/Resolving]
  - Discomfort [Unknown]

NARRATIVE: CASE EVENT DATE: 20210619
